FAERS Safety Report 24375936 (Version 1)
Quarter: 2024Q3

REPORT INFORMATION
  Report Type: Spontaneous
  Country: GB (occurrence: GB)
  Receive Date: 20240928
  Receipt Date: 20240928
  Transmission Date: 20241017
  Serious: Yes (Hospitalization, Other)
  Sender: PROVEPHARM
  Company Number: GB-Provepharm-2162168

PATIENT
  Age: 75 Year
  Sex: Female

DRUGS (2)
  1. PROVAYBLUE [Suspect]
     Active Substance: METHYLENE BLUE
     Indication: Parathyroidectomy
  2. VENLAFAXINE [Concomitant]
     Active Substance: VENLAFAXINE HYDROCHLORIDE

REACTIONS (1)
  - Loss of consciousness [Recovered/Resolved]
